FAERS Safety Report 7114647-5 (Version None)
Quarter: 2010Q4

REPORT INFORMATION
  Report Type: 
  Country: None (occurrence: None)
  Receive Date: 20101122
  Receipt Date: 20101111
  Transmission Date: 20110411
  Serious: Yes (Hospitalization)
  Sender: FDA-Public Use
  Company Number: US-BIOGENIDEC-2010BI011810

PATIENT
  Sex: Female
  Weight: 158 kg

DRUGS (2)
  1. TYSABRI [Suspect]
     Indication: MULTIPLE SCLEROSIS
     Route: 042
     Dates: start: 20061213
  2. STEROIDS (NOS) [Concomitant]
     Indication: MULTIPLE SCLEROSIS

REACTIONS (8)
  - ASTHMA [None]
  - BONE DISORDER [None]
  - DEVICE DISLOCATION [None]
  - FATIGUE [None]
  - HIP FRACTURE [None]
  - INTERVERTEBRAL DISC COMPRESSION [None]
  - MULTIPLE SCLEROSIS RELAPSE [None]
  - WEIGHT INCREASED [None]
